FAERS Safety Report 19496165 (Version 1)
Quarter: 2021Q3

REPORT INFORMATION
  Report Type: Spontaneous
  Country: US (occurrence: US)
  Receive Date: 20210701
  Receipt Date: 20210701
  Transmission Date: 20211014
  Serious: Yes (Hospitalization)
  Sender: FDA-Public Use
  Company Number: None

PATIENT
  Age: 71 Year
  Sex: Female

DRUGS (20)
  1. GLIPIZIDE ER 2.5 MG TABLET [Concomitant]
  2. MULTIVITAMIN TABLET [Concomitant]
  3. LISINOPRIL 40 MG TABLET [Concomitant]
  4. TIZANADINE 4 MG CAPSULE [Concomitant]
  5. VITAMIN D3 1000 UNIT TABLET [Concomitant]
  6. TUMS 750 MG CHEWABLE TABLET [Concomitant]
  7. CRANBERRY 200 MG CAPSULE [Concomitant]
  8. ALLEGRA [Concomitant]
     Active Substance: FEXOFENADINE HYDROCHLORIDE
  9. CLINDAMYCIN 300 MG CAPSULE [Concomitant]
  10. METOPROLOL ER SUCCINATE 100 MG TABLET [Concomitant]
  11. GLUCOSAMINE CHONDROITIN [Concomitant]
     Active Substance: CHONDROITIN SULFATE (BOVINE)\GLUCOSAMINE HYDROCHLORIDE
  12. METFORMIN 1000 MG TABLET [Concomitant]
  13. NORVASC 10 MG TABLET [Concomitant]
  14. LOKELMA [Suspect]
     Active Substance: SODIUM ZIRCONIUM CYCLOSILICATE
     Indication: HYPERKALAEMIA
     Route: 048
     Dates: start: 20200609
  15. BRILINTA 90 MG TABLET [Concomitant]
  16. ONDANSETRON ODT 4 MG TABLET [Concomitant]
  17. ATORVASTATIN 10 MG TABLET [Concomitant]
  18. OXYCODONE 5 MG IMMEDIATE RELEASE TABLET [Concomitant]
  19. BIOTIN 5000 MCG CAPSULE [Concomitant]
  20. PAROXETINE 40 MG TABLET [Concomitant]

REACTIONS (1)
  - Myocardial infarction [None]

NARRATIVE: CASE EVENT DATE: 20210621
